FAERS Safety Report 7974928-X (Version None)
Quarter: 2011Q4

REPORT INFORMATION
  Report Type: 
  Country: None (occurrence: None)
  Receive Date: 20111213
  Receipt Date: 20111114
  Transmission Date: 20120403
  Serious: No
  Sender: FDA-Public Use
  Company Number: US-AMGEN-USASP2011054055

PATIENT
  Age: 50 Year
  Sex: Female

DRUGS (2)
  1. METHOTREXATE [Concomitant]
     Dosage: 1 MG, QWK
     Dates: start: 20110101
  2. ENBREL [Suspect]
     Indication: RHEUMATOID ARTHRITIS
     Dosage: 50 MG, QWK
     Route: 058
     Dates: start: 20111001, end: 20111114

REACTIONS (8)
  - MIGRAINE [None]
  - INJECTION SITE DISCOMFORT [None]
  - VOMITING [None]
  - PHOTOPHOBIA [None]
  - ABNORMAL SENSATION IN EYE [None]
  - HEADACHE [None]
  - INJECTION SITE REACTION [None]
  - INJECTION SITE PAIN [None]
